FAERS Safety Report 11777657 (Version 5)
Quarter: 2015Q4

REPORT INFORMATION
  Report Type: Report from Study
  Country: BR (occurrence: BR)
  Receive Date: 20151125
  Receipt Date: 20151210
  Transmission Date: 20160304
  Serious: Yes (Other)
  Sender: FDA-Public Use
  Company Number: PHHY2015BR153295

PATIENT
  Age: 17 Year
  Sex: Male

DRUGS (3)
  1. RISPERIDONE. [Concomitant]
     Active Substance: RISPERIDONE
     Indication: DEPRESSION
     Dosage: 1 MG, QD IN THE EVENING
     Route: 048
     Dates: start: 20151118
  2. EXJADE [Suspect]
     Active Substance: DEFERASIROX
     Indication: SICKLE CELL ANAEMIA
     Dosage: 2 DF, QD
     Route: 048
     Dates: start: 2010
  3. SERTRALINE HYDROCHLORIDE. [Concomitant]
     Active Substance: SERTRALINE HYDROCHLORIDE
     Indication: DEPRESSION
     Dosage: 50 MG, QD IN THE MORNING
     Route: 048
     Dates: start: 20151118

REACTIONS (6)
  - Asthenia [Recovering/Resolving]
  - Erectile dysfunction [Unknown]
  - Malaise [Unknown]
  - Aggression [Recovering/Resolving]
  - Social avoidant behaviour [Unknown]
  - Seizure [Recovered/Resolved]

NARRATIVE: CASE EVENT DATE: 201511
